FAERS Safety Report 21658601 (Version 1)
Quarter: 2022Q4

REPORT INFORMATION
  Report Type: Spontaneous
  Country: GB (occurrence: None)
  Receive Date: 20221129
  Receipt Date: 20221129
  Transmission Date: 20230112
  Serious: Yes (Disabling)
  Sender: FDA-Public Use
  Company Number: 2022A384199

PATIENT
  Age: 37 Year
  Sex: Male
  Weight: 57 kg

DRUGS (13)
  1. DAPAGLIFLOZIN [Suspect]
     Active Substance: DAPAGLIFLOZIN
     Indication: Ill-defined disorder
     Route: 065
     Dates: start: 20221118
  2. BISOPROLOL [Concomitant]
     Active Substance: BISOPROLOL
     Indication: Ill-defined disorder
     Dosage: TAKE ONE TABLET ONCE A DAY
     Dates: start: 20220623
  3. CHLORPHENIRAMINE MALEATE [Concomitant]
     Active Substance: CHLORPHENIRAMINE MALEATE
     Indication: Ill-defined disorder
     Dosage: TAKE ONE EVERY 4-6 HRS AS NEEDED
     Dates: start: 20220517
  4. CODEINE PHOSPHATE [Concomitant]
     Active Substance: CODEINE PHOSPHATE
     Indication: Ill-defined disorder
     Dosage: TAKE ONE OR TWO TABLETS EVERY 6 HOURS WHEN NECE...
     Dates: start: 20220517, end: 20221020
  5. DAPAGLIFLOZIN [Concomitant]
     Active Substance: DAPAGLIFLOZIN
     Indication: Ill-defined disorder
     Dosage: TAKE ONE TABLET ONCE A DAY FOR TREATING HEART F...
     Dates: start: 20221101
  6. ESCITALOPRAM [Concomitant]
     Active Substance: ESCITALOPRAM OXALATE
     Indication: Ill-defined disorder
     Dosage: TAKE ONE DAILY
     Dates: start: 20220805
  7. GABAPENTIN [Concomitant]
     Active Substance: GABAPENTIN
     Indication: Ill-defined disorder
     Dosage: TAKE 2 IN THE MORNING, ONE AT LUNCH AND ONE AT ...
     Dates: start: 20220517
  8. LANSOPRAZOLE [Concomitant]
     Active Substance: LANSOPRAZOLE
     Indication: Ill-defined disorder
     Dosage: TAKE ONE CAPSULE ONCE A DAY
     Dates: start: 20220517
  9. MIRTAZAPINE [Concomitant]
     Active Substance: MIRTAZAPINE
     Indication: Ill-defined disorder
     Dosage: TAKE ONE TABLET AT NIGHT
     Dates: start: 20220517
  10. ACETAMINOPHEN [Concomitant]
     Active Substance: ACETAMINOPHEN
     Indication: Ill-defined disorder
     Dosage: TAKE 1-2 TO BE TAKEN FOUR TIMES DAILY WHEN REQUIRED
     Dates: start: 20220517
  11. SACUBITRIL [Concomitant]
     Active Substance: SACUBITRIL
     Indication: Ill-defined disorder
     Dosage: TAKE ONE TABLET TWICE A DAY FOR TREATING HEART ...
     Dates: start: 20220816
  12. SPIRONOLACTONE [Concomitant]
     Active Substance: SPIRONOLACTONE
     Indication: Ill-defined disorder
     Dosage: TAKE HALF TABLET DAILY ( 12.5MG DAILY )
     Dates: start: 20220531
  13. WARFARIN SODIUM [Concomitant]
     Active Substance: WARFARIN SODIUM
     Indication: Ill-defined disorder
     Dosage: TAKE AT THE SAME TIME EACH EVENING ACCORDING TO...
     Dates: start: 20220517

REACTIONS (3)
  - Fatigue [Recovering/Resolving]
  - Dysgeusia [Recovering/Resolving]
  - Abdominal pain upper [Recovering/Resolving]

NARRATIVE: CASE EVENT DATE: 20221118
